FAERS Safety Report 17023359 (Version 1)
Quarter: 2019Q4

REPORT INFORMATION
  Report Type: Spontaneous
  Country: CN (occurrence: CN)
  Receive Date: 20191112
  Receipt Date: 20191112
  Transmission Date: 20200122
  Serious: Yes (Other)
  Sender: FDA-Public Use
  Company Number: CN-BAXTER-2019BAX022374

PATIENT
  Age: 54 Year
  Sex: Male
  Weight: 75 kg

DRUGS (12)
  1. ZE TONG (TORASEMIDE) [Suspect]
     Active Substance: TORSEMIDE
     Indication: BLOOD PRESSURE MANAGEMENT
  2. VINPOCETINE [Suspect]
     Active Substance: VINPOCETINE
     Indication: CEREBRAL HAEMORRHAGE
     Route: 041
     Dates: start: 20191023, end: 20191101
  3. VINPOCETINE [Suspect]
     Active Substance: VINPOCETINE
     Indication: DISEASE COMPLICATION
  4. LOTENSIN [Suspect]
     Active Substance: BENAZEPRIL HYDROCHLORIDE
     Dosage: TABLET
     Route: 045
     Dates: start: 20191029, end: 20191030
  5. GLUCOSE [Suspect]
     Active Substance: DEXTROSE
     Indication: MEDICATION DILUTION
     Dosage: 5% GS 500ML + VINPOCETINE 20MG
     Route: 041
     Dates: start: 20191023, end: 20191101
  6. LOTENSIN [Suspect]
     Active Substance: BENAZEPRIL HYDROCHLORIDE
     Indication: BLOOD PRESSURE MANAGEMENT
     Dosage: TABLET
     Route: 045
     Dates: start: 20191020, end: 20191028
  7. BETALOC ZOK [Suspect]
     Active Substance: METOPROLOL SUCCINATE
     Indication: BLOOD PRESSURE MANAGEMENT
     Dosage: TABLET
     Route: 045
     Dates: start: 20191021, end: 20191101
  8. IRBESARTAN AND HYDROCHLOROTHIAZIDE [Suspect]
     Active Substance: HYDROCHLOROTHIAZIDE\IRBESARTAN
     Indication: BLOOD PRESSURE MANAGEMENT
     Dosage: TABLET; DOSE: 2 PILL
     Route: 045
     Dates: start: 20191028, end: 20191029
  9. FUROSEMIDE. [Suspect]
     Active Substance: FUROSEMIDE
     Indication: BLOOD PRESSURE MANAGEMENT
  10. ZE TONG (TORASEMIDE) [Suspect]
     Active Substance: TORSEMIDE
     Indication: DEHYDRATION
     Route: 042
     Dates: start: 20191024, end: 20191027
  11. 20% MANNITOL INJECTION [Suspect]
     Active Substance: MANNITOL
     Indication: DEHYDRATION
     Route: 041
     Dates: start: 20191020, end: 20191029
  12. FUROSEMIDE. [Suspect]
     Active Substance: FUROSEMIDE
     Indication: DEHYDRATION
     Route: 042
     Dates: start: 20191022, end: 20191024

REACTIONS (2)
  - Hepatic function abnormal [Recovering/Resolving]
  - Renal impairment [Recovering/Resolving]

NARRATIVE: CASE EVENT DATE: 20191101
